FAERS Safety Report 5417269-7 (Version None)
Quarter: 2007Q3

REPORT INFORMATION
  Report Type: 
  Country: None (occurrence: None)
  Receive Date: 20070816
  Receipt Date: 20070809
  Transmission Date: 20080115
  Serious: Yes (Hospitalization)
  Sender: FDA-Public Use
  Company Number: US-GENENTECH-245991

PATIENT
  Age: 56 Year
  Sex: Male

DRUGS (7)
  1. RITUXAN [Suspect]
     Indication: MANTLE CELL LYMPHOMA
     Dosage: 375 MG/M2, UNK
  2. METHYLPREDNISOLONE 16MG TAB [Concomitant]
     Indication: DRUG USE FOR UNKNOWN INDICATION
     Dosage: 2 G, 3/WEEK
     Route: 042
  3. METHYLPREDNISOLONE 16MG TAB [Concomitant]
     Indication: PREMEDICATION
  4. ACETAMINOPHEN [Concomitant]
     Indication: PREMEDICATION
  5. DIPHENHYDRAMINE HCL [Concomitant]
     Indication: PREMEDICATION
     Dosage: 25 UNK, UNK
     Route: 042
  6. DIPHENHYDRAMINE HCL [Concomitant]
     Dosage: 25 UNK, UNK
     Route: 042
  7. MEPERIDINE HCL [Concomitant]
     Indication: DRUG USE FOR UNKNOWN INDICATION

REACTIONS (2)
  - PNEUMOCYSTIS JIROVECI PNEUMONIA [None]
  - PULMONARY TOXICITY [None]
